FAERS Safety Report 23309541 (Version 2)
Quarter: 2023Q4

REPORT INFORMATION
  Report Type: Spontaneous
  Country: MX (occurrence: MX)
  Receive Date: 20231218
  Receipt Date: 20231220
  Transmission Date: 20240110
  Serious: Yes (Other)
  Sender: FDA-Public Use
  Company Number: MX-BAYER-2023A180881

PATIENT
  Age: 42 Year
  Sex: Female

DRUGS (3)
  1. LAROTRECTINIB [Suspect]
     Active Substance: LAROTRECTINIB
     Indication: Desmoid tumour
     Dosage: 100 MG, BID
     Route: 048
     Dates: start: 20220525, end: 20231028
  2. LAROTRECTINIB [Suspect]
     Active Substance: LAROTRECTINIB
     Indication: Desmoid tumour
     Dosage: 100 MG, QD
     Route: 048
     Dates: start: 20231028
  3. LAROTRECTINIB [Suspect]
     Active Substance: LAROTRECTINIB
     Indication: Desmoid tumour
     Dosage: 100 MG, BID
     Route: 048
     Dates: start: 20231125

REACTIONS (1)
  - Anaemia [None]

NARRATIVE: CASE EVENT DATE: 20231001
